FAERS Safety Report 21462558 (Version 3)
Quarter: 2023Q2

REPORT INFORMATION
  Report Type: Spontaneous
  Country: FR (occurrence: FR)
  Receive Date: 20221016
  Receipt Date: 20230616
  Transmission Date: 20230722
  Serious: Yes (Disabling)
  Sender: FDA-Public Use
  Company Number: None

PATIENT
  Age: 43 Year
  Sex: Female
  Weight: 50 kg

DRUGS (3)
  1. HUMIRA [Suspect]
     Active Substance: ADALIMUMAB
     Indication: Ankylosing spondylitis
     Route: 058
     Dates: start: 202105, end: 202112
  2. L-THYROXINE ROCHE [Concomitant]
     Indication: Product used for unknown indication
     Route: 065
  3. PROPRANOLOL [Concomitant]
     Active Substance: PROPRANOLOL HYDROCHLORIDE
     Indication: Product used for unknown indication

REACTIONS (2)
  - Pyramidal tract syndrome [Recovered/Resolved]
  - Pachymeningitis [Recovered/Resolved]

NARRATIVE: CASE EVENT DATE: 20211201
